FAERS Safety Report 7038562-0 (Version None)
Quarter: 2010Q4

REPORT INFORMATION
  Report Type: 
  Country: None (occurrence: None)
  Receive Date: 20101011
  Receipt Date: 20100713
  Transmission Date: 20110411
  Serious: No
  Sender: FDA-Public Use
  Company Number: US-PFIZER INC-2010087602

PATIENT

DRUGS (1)
  1. NEURONTIN [Suspect]

REACTIONS (2)
  - HYPERSENSITIVITY [None]
  - RASH [None]
